FAERS Safety Report 6390914-8 (Version None)
Quarter: 2009Q4

REPORT INFORMATION
  Report Type: 
  Country: None (occurrence: None)
  Receive Date: 20091003
  Receipt Date: 20090918
  Transmission Date: 20100525
  Serious: Yes (Death)
  Sender: FDA-Public Use
  Company Number: 2009270894

PATIENT
  Age: 70 Year
  Sex: Male

DRUGS (2)
  1. FRAGMIN [Suspect]
     Indication: THROMBOSIS PROPHYLAXIS
     Dosage: 1 DF, DAILY, SUBCUTANEOUS
     Route: 058
     Dates: start: 20090330, end: 20090411
  2. GLYCERYL TRINITRATE (GLYCERYL TRINITRATE) [Concomitant]

REACTIONS (1)
  - SUDDEN DEATH [None]
